FAERS Safety Report 10692720 (Version 1)
Quarter: 2015Q1

REPORT INFORMATION
  Report Type: Spontaneous
  Country: JP (occurrence: JP)
  Receive Date: 20150106
  Receipt Date: 20150106
  Transmission Date: 20150720
  Serious: Yes (Hospitalization)
  Sender: FDA-Public Use
  Company Number: PHHY2014JP170953

PATIENT
  Age: 66 Year
  Sex: Male

DRUGS (1)
  1. TASIGNA [Suspect]
     Active Substance: NILOTINIB
     Indication: PRODUCT USED FOR UNKNOWN INDICATION
     Route: 048

REACTIONS (6)
  - Cerebral infarction [Unknown]
  - Hypertension [Unknown]
  - Peripheral swelling [Unknown]
  - Pleural effusion [Unknown]
  - Pericardial effusion [Unknown]
  - Oedema [Unknown]

NARRATIVE: CASE EVENT DATE: 2014
